FAERS Safety Report 4963721-8 (Version None)
Quarter: 2006Q1

REPORT INFORMATION
  Report Type: 
  Country: None (occurrence: None)
  Receive Date: 20060329
  Receipt Date: 20051129
  Transmission Date: 20060701
  Serious: Yes (Death)
  Sender: FDA-Public Use
  Company Number: 2005-US-01303

PATIENT
  Age: 54 Year
  Sex: Female

DRUGS (4)
  1. GABAPENTIN [Suspect]
  2. METAXALONE [Suspect]
  3. PARACETAMOL [Concomitant]
  4. CITALOPRAM [Concomitant]

REACTIONS (5)
  - ACCIDENTAL OVERDOSE [None]
  - COMPLETED SUICIDE [None]
  - DRUG DEPENDENCE [None]
  - DRUG TOXICITY [None]
  - INTENTIONAL OVERDOSE [None]
